FAERS Safety Report 7564744-5 (Version None)
Quarter: 2011Q2

REPORT INFORMATION
  Report Type: 
  Country: None (occurrence: None)
  Receive Date: 20110622
  Receipt Date: 20101027
  Transmission Date: 20111010
  Serious: No
  Sender: FDA-Public Use
  Company Number: US-MYLANLABS-2010S1019275

PATIENT
  Age: 35 Year
  Sex: Male

DRUGS (10)
  1. GEODON [Concomitant]
  2. ZYPREXA [Concomitant]
  3. PRILOSEC [Concomitant]
  4. CLOZAPINE [Suspect]
     Indication: SCHIZOPHRENIA
     Route: 048
     Dates: start: 20100625, end: 20101015
  5. PEGINTERFERON ALFA-2A [Concomitant]
  6. PROZAC [Concomitant]
  7. COGENTIN [Concomitant]
  8. VISTARIL [Concomitant]
  9. NEURONTIN [Concomitant]
  10. NAPROXEN [Concomitant]

REACTIONS (1)
  - GRANULOCYTOPENIA [None]
